FAERS Safety Report 7392740-X (Version None)
Quarter: 2011Q2

REPORT INFORMATION
  Report Type: 
  Country: None (occurrence: None)
  Receive Date: 20110404
  Receipt Date: 20110322
  Transmission Date: 20111010
  Serious: Yes (Hospitalization)
  Sender: FDA-Public Use
  Company Number: US-ELI_LILLY_AND_COMPANY-US201101001155

PATIENT
  Sex: Male
  Weight: 83.9 kg

DRUGS (4)
  1. DECADRON [Concomitant]
  2. FOLIC ACID W/VITAMIN B12 [Concomitant]
  3. ALIMTA [Suspect]
     Indication: NON-SMALL CELL LUNG CANCER
     Dosage: 1000 MG, UNK
     Route: 042
     Dates: start: 20101122
  4. ALOXI [Concomitant]
     Indication: NAUSEA
     Dosage: 0.25 MG, UNK
     Dates: start: 20110124

REACTIONS (7)
  - DYSPNOEA [None]
  - HYPERHIDROSIS [None]
  - BLOOD CREATINE PHOSPHOKINASE MB INCREASED [None]
  - PALPITATIONS [None]
  - CHEST PAIN [None]
  - NAUSEA [None]
  - PAIN IN EXTREMITY [None]
